FAERS Safety Report 16012655 (Version 1)
Quarter: 2019Q1

REPORT INFORMATION
  Report Type: Spontaneous
  Country: US (occurrence: US)
  Receive Date: 20190131
  Receipt Date: 20190131
  Transmission Date: 20190418
  Serious: No
  Sender: FDA-Public Use
  Company Number: None

PATIENT
  Age: 13 Year
  Sex: Female

DRUGS (1)
  1. ENBREL [Suspect]
     Active Substance: ETANERCEPT
     Dates: start: 201807

REACTIONS (7)
  - Pyrexia [None]
  - Influenza [None]
  - Dizziness [None]
  - Abdominal pain upper [None]
  - Dysmenorrhoea [None]
  - Nausea [None]
  - Fatigue [None]

NARRATIVE: CASE EVENT DATE: 20190131
